FAERS Safety Report 9234184 (Version 1)
Quarter: 2013Q1

REPORT INFORMATION
  Report Type: Spontaneous
  Country: US (occurrence: None)
  Receive Date: 20121031
  Receipt Date: 20121031
  Transmission Date: 20140127
  Serious: No
  Sender: FDA-Public Use
  Company Number: PHEH2012US015405

PATIENT
  Age: 49 Year
  Sex: Female
  Weight: 76.2 kg

DRUGS (5)
  1. GILENYA (FTY) CAPSULE, 0.5MG [Suspect]
     Indication: MULTIPLE SCLEROSIS
     Route: 048
     Dates: start: 20120803
  2. STEROIDS NO (NO INGREDIENTS/SUBSTANCES) [Concomitant]
  3. EXFORGE (AMLODIPINE BESILATE, VALSARTAN) [Concomitant]
  4. PROPANOLOL (PROPRANOLOL) [Concomitant]
  5. SIMVASTATIN (SIMVASTATIN) [Concomitant]

REACTIONS (8)
  - Insomnia [None]
  - Sleep disorder [None]
  - Hot flush [None]
  - Weight increased [None]
  - Nausea [None]
  - Abdominal pain [None]
  - Diarrhoea [None]
  - Headache [None]
